FAERS Safety Report 15584389 (Version 1)
Quarter: 2018Q4

REPORT INFORMATION
  Report Type: Spontaneous
  Country: US (occurrence: US)
  Receive Date: 20181105
  Receipt Date: 20181105
  Transmission Date: 20190205
  Serious: Yes (Other)
  Sender: FDA-Public Use
  Company Number: None

PATIENT
  Age: 20 Year
  Sex: Male
  Weight: 60 kg

DRUGS (1)
  1. MEROPENEM. [Suspect]
     Active Substance: MEROPENEM
     Indication: BRAIN ABSCESS
     Route: 040
     Dates: start: 20180917, end: 20181009

REACTIONS (3)
  - White blood cell count decreased [None]
  - Therapy change [None]
  - Neutrophil count decreased [None]

NARRATIVE: CASE EVENT DATE: 20181016
